FAERS Safety Report 6736220-0 (Version None)
Quarter: 2010Q2

REPORT INFORMATION
  Report Type: 
  Country: None (occurrence: None)
  Receive Date: 20100521
  Receipt Date: 20100512
  Transmission Date: 20101027
  Serious: Yes (Hospitalization)
  Sender: FDA-Public Use
  Company Number: KR-JNJFOC-20100506109

PATIENT
  Age: 38 Year
  Sex: Female

DRUGS (6)
  1. TOPIRAMATE [Suspect]
     Indication: WEIGHT LOSS DIET
     Route: 048
  2. TOPIRAMATE [Suspect]
     Route: 048
  3. TOPIRAMATE [Suspect]
     Dosage: DRUG USE FOR ABOUT A MONTH
     Route: 048
  4. PHENDIMETRAZINE FUMARATE [Suspect]
     Indication: WEIGHT LOSS DIET
     Route: 048
  5. PHENDIMETRAZINE FUMARATE [Suspect]
     Route: 048
  6. PHENDIMETRAZINE FUMARATE [Suspect]
     Route: 048

REACTIONS (8)
  - ABNORMAL BEHAVIOUR [None]
  - AGITATION [None]
  - ANXIETY [None]
  - HALLUCINATION, AUDITORY [None]
  - INSOMNIA [None]
  - PERSECUTORY DELUSION [None]
  - THERAPEUTIC RESPONSE UNEXPECTED [None]
  - WEIGHT DECREASED [None]
